FAERS Safety Report 23571773 (Version 1)
Quarter: 2024Q1

REPORT INFORMATION
  Report Type: Spontaneous
  Country: US (occurrence: None)
  Receive Date: 20240227
  Receipt Date: 20240227
  Transmission Date: 20240410
  Serious: No
  Sender: FDA-Public Use
  Company Number: None

PATIENT
  Age: 43 Year
  Sex: Female
  Weight: 70.2 kg

DRUGS (4)
  1. VICTOZA [Suspect]
     Active Substance: LIRAGLUTIDE
     Indication: Diabetes mellitus
     Dosage: FREQUENCY : DAILY;?
     Route: 058
     Dates: start: 20230822, end: 20230906
  2. VITAMIN B12 [Concomitant]
     Active Substance: CYANOCOBALAMIN
  3. VITAMIN D NOS [Concomitant]
     Active Substance: VITAMIN D NOS
  4. KELP [Concomitant]
     Active Substance: KELP

REACTIONS (6)
  - Fatigue [None]
  - Nausea [None]
  - Dizziness [None]
  - Decreased appetite [None]
  - Rhinorrhoea [None]
  - Illness [None]

NARRATIVE: CASE EVENT DATE: 20230905
